FAERS Safety Report 7347293-9 (Version None)
Quarter: 2011Q1

REPORT INFORMATION
  Report Type: 
  Country: None (occurrence: None)
  Receive Date: 20110311
  Receipt Date: 20110226
  Transmission Date: 20110831
  Serious: Yes (Other)
  Sender: FDA-Public Use
  Company Number: PHHY2011JP05446

PATIENT
  Age: 74 Year
  Sex: Female

DRUGS (2)
  1. ETHAMBUTOL HYDROCHLORIDE [Suspect]
     Indication: MYCOBACTERIUM AVIUM COMPLEX INFECTION
     Dosage: 750 MG/DAY
  2. CLARITHROMYCIN [Suspect]
     Indication: MYCOBACTERIUM AVIUM COMPLEX INFECTION
     Dosage: 600 MG, QD

REACTIONS (18)
  - OSTEOMYELITIS BACTERIAL [None]
  - CREATININE RENAL CLEARANCE DECREASED [None]
  - ANAEMIA [None]
  - WHITE BLOOD CELL COUNT DECREASED [None]
  - LIVER DISORDER [None]
  - LYMPHOCYTE STIMULATION TEST POSITIVE [None]
  - NERVE COMPRESSION [None]
  - GRANULOMA [None]
  - CONDITION AGGRAVATED [None]
  - DEAFNESS [None]
  - BACK PAIN [None]
  - HYPOAESTHESIA [None]
  - PAIN [None]
  - RASH [None]
  - PLATELET COUNT ABNORMAL [None]
  - PYREXIA [None]
  - SPINAL CORD COMPRESSION [None]
  - HYPOKINESIA [None]
